FAERS Safety Report 24804493 (Version 1)
Quarter: 2025Q1

REPORT INFORMATION
  Report Type: Spontaneous
  Country: US (occurrence: None)
  Receive Date: 20250102
  Receipt Date: 20250102
  Transmission Date: 20250408
  Serious: Yes (Death)
  Sender: FDA-CTU
  Company Number: None

PATIENT

DRUGS (6)
  1. ODEFSEY [Suspect]
     Active Substance: EMTRICITABINE\RILPIVIRINE HYDROCHLORIDE\TENOFOVIR ALAFENAMIDE FUMARATE
     Dosage: FREQUENCY : DAILY;?
     Route: 048
     Dates: start: 20221111, end: 20241117
  2. LOVASTATIN [Concomitant]
     Active Substance: LOVASTATIN
  3. LOSARTAN [Concomitant]
     Active Substance: LOSARTAN
  4. humulin-R Kwikpen [Concomitant]
  5. one touch verio test strips test [Concomitant]
  6. XARELTO [Concomitant]
     Active Substance: RIVAROXABAN

REACTIONS (1)
  - Unevaluable event [None]

NARRATIVE: CASE EVENT DATE: 20241117
